FAERS Safety Report 10467164 (Version 2)
Quarter: 2014Q4

REPORT INFORMATION
  Report Type: Report from Study
  Country: GB (occurrence: GB)
  Receive Date: 20140922
  Receipt Date: 20141104
  Transmission Date: 20150528
  Serious: Yes (Other)
  Sender: FDA-Public Use
  Company Number: GB-ABBVIE-14K-167-1284301-00

PATIENT
  Age: 54 Year
  Sex: Female

DRUGS (2)
  1. STEROID ANTIBACTERIALS [Interacting]
     Active Substance: UNSPECIFIED INGREDIENT
     Indication: RHEUMATOID ARTHRITIS
     Route: 050
  2. HUMIRA [Suspect]
     Active Substance: ADALIMUMAB
     Indication: RHEUMATOID ARTHRITIS
     Route: 050
     Dates: start: 201408

REACTIONS (8)
  - Depression [Recovered/Resolved]
  - Stupor [Recovered/Resolved]
  - Drug interaction [Recovered/Resolved]
  - Dark circles under eyes [Recovered/Resolved]
  - Hypophagia [Unknown]
  - Dyspnoea [Recovered/Resolved]
  - Depressed mood [Recovered/Resolved]
  - Feeling abnormal [Recovered/Resolved]

NARRATIVE: CASE EVENT DATE: 201408
